FAERS Safety Report 4877520-9 (Version None)
Quarter: 2006Q1

REPORT INFORMATION
  Report Type: 
  Country: None (occurrence: None)
  Receive Date: 20060109
  Receipt Date: 20051230
  Transmission Date: 20060701
  Serious: Yes (Hospitalization, Other)
  Sender: FDA-Public Use
  Company Number: KII-2005-0020554

PATIENT
  Age: 69 Year
  Sex: Male

DRUGS (6)
  1. MORPHINE SULFATE [Suspect]
     Indication: CANCER PAIN
     Dosage: ORAL
     Route: 048
  2. ANTIBIOTICS ( ) [Suspect]
     Indication: PNEUMONIA
     Dosage: ORAL
     Route: 048
  3. BENZODIAZEPINE DERIVATIVES ( ) [Suspect]
     Dosage: ORAL
     Route: 048
  4. OTHER HAEMATOLOGICAL AGENTS [Concomitant]
  5. LASIX [Concomitant]
  6. LISINOPRIL [Concomitant]

REACTIONS (5)
  - COMA [None]
  - DRUG SCREEN POSITIVE [None]
  - ELECTROCARDIOGRAM QT CORRECTED INTERVAL PROLONGED [None]
  - LETHARGY [None]
  - SPEECH DISORDER [None]
